FAERS Safety Report 7900482-4 (Version None)
Quarter: 2011Q4

REPORT INFORMATION
  Report Type: 
  Country: None (occurrence: None)
  Receive Date: 20111108
  Receipt Date: 20111020
  Transmission Date: 20120403
  Serious: No
  Sender: FDA-Public Use
  Company Number: US-PFIZER INC-2011254632

PATIENT
  Sex: Female
  Weight: 68.934 kg

DRUGS (2)
  1. EPIPEN [Suspect]
     Dosage: 0.3 MG, UNK
     Dates: start: 20100301
  2. BENADRYL [Concomitant]
     Dosage: UNK
     Route: 042

REACTIONS (2)
  - URTICARIA [None]
  - DYSPNOEA [None]
